FAERS Safety Report 5847466-8 (Version None)
Quarter: 2008Q3

REPORT INFORMATION
  Report Type: 
  Country: None (occurrence: None)
  Receive Date: 20080813
  Receipt Date: 20080731
  Transmission Date: 20090109
  Serious: Yes (Hospitalization)
  Sender: FDA-Public Use
  Company Number: 2008JP003343

PATIENT
  Age: 39 Year
  Sex: Female

DRUGS (5)
  1. PROGRAF [Suspect]
     Indication: RENAL TRANSPLANT
  2. SIMULECT [Suspect]
     Indication: RENAL TRANSPLANT
     Dosage: 20 MG, IV NOS; 20 MG, IV NOS
     Route: 042
     Dates: start: 20071218
  3. SIMULECT [Suspect]
     Indication: RENAL TRANSPLANT
     Dosage: 20 MG, IV NOS; 20 MG, IV NOS
     Route: 042
     Dates: start: 20071221
  4. CELLCEPT [Concomitant]
  5. MEDROL [Concomitant]

REACTIONS (4)
  - HYPOXIA [None]
  - LUNG INJURY [None]
  - NON-CARDIOGENIC PULMONARY OEDEMA [None]
  - RESPIRATORY ALKALOSIS [None]
